FAERS Safety Report 4999827-7 (Version None)
Quarter: 2006Q2

REPORT INFORMATION
  Report Type: 
  Country: None (occurrence: None)
  Receive Date: 20060511
  Receipt Date: 20060503
  Transmission Date: 20061013
  Serious: Yes (Hospitalization)
  Sender: FDA-Public Use
  Company Number: 2006CG00790

PATIENT
  Age: 94 Year
  Sex: Female
  Weight: 48 kg

DRUGS (4)
  1. MOPRAL [Suspect]
     Indication: OESOPHAGITIS
     Route: 048
     Dates: end: 20060322
  2. ALDALIX [Suspect]
     Indication: ESSENTIAL HYPERTENSION
     Dosage: 50 + 20 MG
     Route: 048
  3. CORVASAL [Concomitant]
     Indication: ANGINA PECTORIS
     Route: 048
  4. IMOVANE [Concomitant]
     Indication: SLEEP DISORDER
     Route: 048

REACTIONS (5)
  - ASTHENIA [None]
  - CONFUSIONAL STATE [None]
  - NEUTROPENIA [None]
  - RENAL FAILURE ACUTE [None]
  - WHITE BLOOD CELL COUNT DECREASED [None]
